FAERS Safety Report 7512117-3 (Version None)
Quarter: 2011Q2

REPORT INFORMATION
  Report Type: 
  Country: None (occurrence: None)
  Receive Date: 20110519
  Receipt Date: 20110503
  Transmission Date: 20111010
  Serious: Yes (Other)
  Sender: FDA-Public Use
  Company Number: 2011-1360

PATIENT
  Age: 60 Year
  Sex: Male

DRUGS (6)
  1. CERTICAN [Concomitant]
  2. VALACYCLOVIR [Concomitant]
  3. RABEPRAZOLE SODIUM [Concomitant]
  4. COVERSYL (PERINDOPRIL) [Suspect]
     Indication: PRODUCT USED FOR UNKNOWN INDICATION
  5. SOMATULINE DEPOT [Suspect]
     Indication: NEUROENDOCRINE TUMOUR
     Dosage: 120, 60 MG (120 MG, 1 IN 1 M)SUBCUTANEOUS
     Route: 058
     Dates: end: 20060101
  6. ASPEGIC 1000 [Concomitant]

REACTIONS (4)
  - POST PROCEDURAL INFECTION [None]
  - LIVER TRANSPLANT [None]
  - CARDIAC FAILURE [None]
  - RENAL FAILURE [None]
